FAERS Safety Report 25869808 (Version 1)
Quarter: 2025Q3

REPORT INFORMATION
  Report Type: Spontaneous
  Country: US (occurrence: None)
  Receive Date: 20250930
  Receipt Date: 20250930
  Transmission Date: 20251021
  Serious: Yes (Hospitalization)
  Sender: FDA-CTU
  Company Number: None

PATIENT
  Sex: Female
  Weight: 112.05 kg

DRUGS (3)
  1. ICATIBANT ACETATE [Suspect]
     Active Substance: ICATIBANT ACETATE
     Indication: Immune system disorder
     Route: 058
     Dates: start: 20250618
  2. TAKHZYRO PFS [Concomitant]
  3. RUCONEST SDV [Concomitant]

REACTIONS (1)
  - Pharyngeal swelling [None]
